FAERS Safety Report 6289197-9 (Version None)
Quarter: 2009Q3

REPORT INFORMATION
  Report Type: 
  Country: None (occurrence: None)
  Receive Date: 20090728
  Receipt Date: 20090720
  Transmission Date: 20100115
  Serious: Yes (Other)
  Sender: FDA-Public Use
  Company Number: OSCN-NO-0804S-0229

PATIENT
  Age: 77 Year
  Sex: Male

DRUGS (4)
  1. OMNISCAN [Suspect]
     Indication: DRUG USE FOR UNKNOWN INDICATION
     Dosage: 30 ML, SINGLE DOSE, I.V., 20 ML, SINGLE DOSE, I.V., 20 ML, I.V.
     Route: 042
     Dates: start: 19990511, end: 19990511
  2. OMNISCAN [Suspect]
     Indication: DRUG USE FOR UNKNOWN INDICATION
     Dosage: 30 ML, SINGLE DOSE, I.V., 20 ML, SINGLE DOSE, I.V., 20 ML, I.V.
     Route: 042
     Dates: start: 20021219, end: 20021219
  3. OMNISCAN [Suspect]
     Indication: DRUG USE FOR UNKNOWN INDICATION
     Dosage: 30 ML, SINGLE DOSE, I.V., 20 ML, SINGLE DOSE, I.V., 20 ML, I.V.
     Route: 042
     Dates: start: 20031209, end: 20031209
  4. MAGNEVIST [Concomitant]

REACTIONS (1)
  - NEPHROGENIC SYSTEMIC FIBROSIS [None]
